FAERS Safety Report 11118904 (Version 1)
Quarter: 2015Q2

REPORT INFORMATION
  Report Type: Spontaneous
  Country: US (occurrence: None)
  Receive Date: 20150515
  Receipt Date: 20150515
  Transmission Date: 20150821
  Serious: Yes (Other)
  Sender: FDA-Public Use
  Company Number: None

PATIENT
  Age: 55 Year
  Sex: Male
  Weight: 68.04 kg

DRUGS (4)
  1. SYLATRON [Suspect]
     Active Substance: PEGINTERFERON ALFA-2B
     Indication: PROPHYLAXIS
     Dosage: .5 MG SUBCUTANEOUS WEEKLY INJECTED IN TO FATTY TISSUE
     Route: 058
     Dates: start: 20150116, end: 20150417
  2. TRAMADOL [Concomitant]
     Active Substance: TRAMADOL
  3. SYLATRON [Suspect]
     Active Substance: PEGINTERFERON ALFA-2B
     Indication: MALIGNANT MELANOMA
     Dosage: .5 MG SUBCUTANEOUS WEEKLY INJECTED IN TO FATTY TISSUE
     Route: 058
     Dates: start: 20150116, end: 20150417
  4. ONDANSETRON [Concomitant]
     Active Substance: ONDANSETRON

REACTIONS (3)
  - Bacterial infection [None]
  - Blister [None]
  - Injection site pain [None]

NARRATIVE: CASE EVENT DATE: 20150213
